FAERS Safety Report 18365333 (Version 1)
Quarter: 2020Q4

REPORT INFORMATION
  Report Type: Spontaneous
  Country: US (occurrence: US)
  Receive Date: 20201009
  Receipt Date: 20201009
  Transmission Date: 20210114
  Serious: Yes (Disabling)
  Sender: FDA-Public Use
  Company Number: None

PATIENT
  Age: 67 Year
  Sex: Female
  Weight: 66.6 kg

DRUGS (10)
  1. CYMBALTA [Concomitant]
     Active Substance: DULOXETINE HYDROCHLORIDE
  2. INJECTAFER [Suspect]
     Active Substance: FERRIC CARBOXYMALTOSE
     Indication: ANAEMIA
     Route: 042
     Dates: start: 20200916, end: 20200916
  3. PANTOPREZOLE [Concomitant]
  4. VITAMIN B12 [Concomitant]
     Active Substance: CYANOCOBALAMIN
  5. VITAMIN D3 [Concomitant]
     Active Substance: CHOLECALCIFEROL
  6. HYDROXYUREA. [Concomitant]
     Active Substance: HYDROXYUREA
  7. INTERFERON [Concomitant]
     Active Substance: INTERFERON
  8. EXCEDRIN MIGRAINE [Concomitant]
     Active Substance: ACETAMINOPHEN\ASPIRIN\CAFFEINE
  9. PREMARIN [Concomitant]
     Active Substance: ESTROGENS, CONJUGATED
  10. IRON [Concomitant]
     Active Substance: IRON

REACTIONS (17)
  - Loss of personal independence in daily activities [None]
  - Hypoaesthesia [None]
  - Medial tibial stress syndrome [None]
  - Pain in extremity [None]
  - Headache [None]
  - Oral discomfort [None]
  - Tongue discomfort [None]
  - Sciatica [None]
  - Sleep disorder [None]
  - Discomfort [None]
  - Burning sensation [None]
  - Back pain [None]
  - Sensory disturbance [None]
  - Muscle spasms [None]
  - Flank pain [None]
  - Paraesthesia [None]
  - Hyperaesthesia [None]

NARRATIVE: CASE EVENT DATE: 20200916
